FAERS Safety Report 5630190-4 (Version None)
Quarter: 2008Q1

REPORT INFORMATION
  Report Type: 
  Country: None (occurrence: None)
  Receive Date: 20080219
  Receipt Date: 20080207
  Transmission Date: 20080703
  Serious: Yes (Death, Hospitalization)
  Sender: FDA-Public Use
  Company Number: FR-JNJFOC-20080106091

PATIENT
  Sex: Male

DRUGS (14)
  1. OFLOCET [Suspect]
     Indication: INFECTION
     Route: 042
  2. CONTRAMAL [Suspect]
     Indication: PAIN
     Route: 048
  3. GENTALLINE [Suspect]
     Indication: INFECTION
     Route: 042
  4. TAZOCILLINE [Suspect]
     Indication: INFECTION
     Route: 042
  5. HYPERPROTIDIC COMPLEMENTS [Concomitant]
     Route: 065
  6. RIVOTRIL [Concomitant]
     Indication: PSYCHOTIC DISORDER
     Route: 048
  7. RISPERDAL [Concomitant]
     Indication: PSYCHOTIC DISORDER
     Route: 048
  8. SEROPRAM [Concomitant]
     Indication: PSYCHOTIC DISORDER
     Route: 048
  9. SECTRAL [Concomitant]
     Indication: HYPERTENSION
     Route: 048
  10. NEXIUM [Concomitant]
     Route: 048
  11. ARTANE [Concomitant]
     Route: 048
  12. FORLAX [Concomitant]
     Indication: CONSTIPATION
     Route: 048
  13. AUGMENTIN '250' [Concomitant]
     Route: 065
  14. OTHER CHEMOTHERAPEUTICS [Concomitant]
     Route: 065

REACTIONS (2)
  - CONVULSION [None]
  - SEPSIS [None]
